FAERS Safety Report 5154161-X (Version None)
Quarter: 2006Q4

REPORT INFORMATION
  Report Type: 
  Country: None (occurrence: None)
  Receive Date: 20061116
  Receipt Date: 20061116
  Transmission Date: 20070319
  Serious: Yes (Hospitalization)
  Sender: FDA-Public Use
  Company Number: None

PATIENT
  Age: 57 Year
  Sex: Female
  Weight: 100 kg

DRUGS (9)
  1. LOVENOX [Suspect]
     Indication: ACUTE CORONARY SYNDROME
     Dosage: 100MG Q12H SQ
     Route: 058
     Dates: start: 20060227, end: 20060308
  2. LOVENOX [Suspect]
     Indication: THROMBOSIS PROPHYLAXIS
     Dosage: 100MG Q12H SQ
     Route: 058
     Dates: start: 20060227, end: 20060308
  3. LISINOPRIL AND HYDROCHLOROTHIAZIDE [Concomitant]
  4. DOCUSATE [Concomitant]
  5. METFORMIN [Concomitant]
  6. CARVEDILOL [Concomitant]
  7. FUROSEMIDE [Concomitant]
  8. GLYBURIDE [Concomitant]
  9. BETAXOLOL HCL [Concomitant]

REACTIONS (9)
  - ABDOMINAL PAIN UPPER [None]
  - DIABETES MELLITUS [None]
  - GASTROINTESTINAL HAEMORRHAGE [None]
  - HAEMATEMESIS [None]
  - HAEMATOCRIT DECREASED [None]
  - HAEMOGLOBIN DECREASED [None]
  - MOBILITY DECREASED [None]
  - OBESITY [None]
  - PNEUMONIA ASPIRATION [None]
